FAERS Safety Report 11481196 (Version 1)
Quarter: 2015Q3

REPORT INFORMATION
  Report Type: Other
  Country: AR (occurrence: AR)
  Receive Date: 20150909
  Receipt Date: 20150909
  Transmission Date: 20151125
  Serious: Yes (Other)
  Sender: FDA-Public Use
  Company Number: AR-COR_00378_2015

PATIENT

DRUGS (7)
  1. VINCRISTINE [Suspect]
     Active Substance: VINCRISTINE
     Indication: GESTATIONAL TROPHOBLASTIC TUMOUR
     Dosage: DAY 8, 1.0 MG/M2
     Route: 040
  2. METHOTREXATE [Suspect]
     Active Substance: METHOTREXATE
     Dosage: DAY 1, 200 MG/M2 IN 1,000 ML OVER 12 H
  3. CYCLOPHOSPHAMIDE. [Suspect]
     Active Substance: CYCLOPHOSPHAMIDE
     Indication: GESTATIONAL TROPHOBLASTIC TUMOUR
     Dosage: DAY 8, 600 MG/M2
  4. METHOTREXATE [Suspect]
     Active Substance: METHOTREXATE
     Indication: GESTATIONAL TROPHOBLASTIC TUMOUR
     Dosage: DAY 1, 100 MG/M2
     Route: 040
  5. ETOPOSIDE. [Suspect]
     Active Substance: ETOPOSIDE
     Indication: GESTATIONAL TROPHOBLASTIC TUMOUR
     Dosage: DAYS 1 AND 2, 100 MG/M2 OVER 30 MIN
     Route: 042
  6. FOLINIC ACID [Suspect]
     Active Substance: LEUCOVORIN
     Indication: GESTATIONAL TROPHOBLASTIC TUMOUR
     Dosage: DAY 2, 15 MG INTRAMUSCULAR OR PER OS EVERY 12 H FOR 4 DOSES BEGINNING 24 H AFTER START OF MTX
  7. ACTINOMYCIN D [Suspect]
     Active Substance: DACTINOMYCIN
     Indication: GESTATIONAL TROPHOBLASTIC TUMOUR
     Dosage: DAYS 1 AND 2, 0.5 MG
     Route: 040

REACTIONS (1)
  - Renal failure [Unknown]
